FAERS Safety Report 9055681 (Version 6)
Quarter: 2013Q4

REPORT INFORMATION
  Report Type: Report from Study
  Country: JP (occurrence: JP)
  Receive Date: 20130206
  Receipt Date: 20131227
  Transmission Date: 20140711
  Serious: Yes (Other)
  Sender: FDA-Public Use
  Company Number: JP-ROCHE-1188330

PATIENT
  Age: 69 Year
  Sex: Male

DRUGS (8)
  1. OMALIZUMAB [Suspect]
     Indication: ASTHMA
     Route: 058
     Dates: start: 20120808, end: 20130124
  2. ADOAIR [Concomitant]
     Route: 065
     Dates: start: 20100709
  3. ONON [Concomitant]
     Route: 065
     Dates: start: 20040510
  4. UNIPHYLLIN [Concomitant]
     Route: 065
     Dates: start: 20040510
  5. NEOPHYLLIN [Concomitant]
     Route: 065
     Dates: start: 20120811
  6. MEPTIN [Concomitant]
     Route: 065
     Dates: start: 20120811, end: 20130812
  7. DEXART [Concomitant]
     Route: 065
     Dates: start: 20120813
  8. PREDONINE [Concomitant]
     Route: 065
     Dates: start: 20120813, end: 20121031

REACTIONS (1)
  - Electrocardiogram QT prolonged [Recovered/Resolved]
